FAERS Safety Report 5603924-2 (Version None)
Quarter: 2008Q1

REPORT INFORMATION
  Report Type: 
  Country: None (occurrence: None)
  Receive Date: 20080128
  Receipt Date: 20080115
  Transmission Date: 20080703
  Serious: Yes (Hospitalization)
  Sender: FDA-Public Use
  Company Number: FR-BAYER-200811450GPV

PATIENT
  Age: 57 Year
  Sex: Male

DRUGS (8)
  1. KOGENATE [Suspect]
     Indication: FACTOR VIII DEFICIENCY
     Route: 042
     Dates: start: 20070625
  2. KOGENATE [Suspect]
     Route: 042
     Dates: start: 20070625
  3. KOGENATE [Suspect]
     Route: 042
     Dates: start: 20070625
  4. KOGENATE [Suspect]
     Route: 042
     Dates: start: 20070625
  5. KOGENATE [Suspect]
     Route: 042
     Dates: start: 20070625
  6. HELIXATE [Suspect]
     Indication: FACTOR VIII DEFICIENCY
     Route: 042
     Dates: start: 20070625
  7. HELIXATE [Suspect]
     Route: 042
     Dates: start: 20070625
  8. HELIXATE [Suspect]
     Route: 042
     Dates: start: 20070625

REACTIONS (2)
  - FACTOR VIII INHIBITION [None]
  - HAEMATOMA [None]
